FAERS Safety Report 5130627-3 (Version None)
Quarter: 2006Q3

REPORT INFORMATION
  Report Type: 
  Country: None (occurrence: None)
  Receive Date: 20060829
  Receipt Date: 20060512
  Transmission Date: 20061208
  Serious: No
  Sender: FDA-Public Use
  Company Number: PHEH2006US06290

PATIENT
  Age: 35 Year
  Sex: Male

DRUGS (4)
  1. EXJADE [Suspect]
     Indication: BLOOD IRON INCREASED
     Dosage: 1000 MG, QD
     Dates: start: 20060511
  2. PHENYTOIN [Concomitant]
  3. FOLIC ACID [Concomitant]
  4. HYDROXYUREA [Concomitant]

REACTIONS (3)
  - ABDOMINAL SYMPTOM [None]
  - DIARRHOEA [None]
  - PARAESTHESIA [None]
